FAERS Safety Report 9420032 (Version 1)
Quarter: 2013Q3

REPORT INFORMATION
  Report Type: Spontaneous
  Country: DE (occurrence: DE)
  Receive Date: 20130725
  Receipt Date: 20130725
  Transmission Date: 20140515
  Serious: Yes (Other)
  Sender: FDA-Public Use
  Company Number: DE-ACTELION-A-CH2013-86224

PATIENT
  Age: 40 Year
  Sex: Male

DRUGS (3)
  1. ZAVESCA [Suspect]
     Indication: NIEMANN-PICK DISEASE
     Dosage: 200 MG, TID
     Route: 048
  2. ZAVESCA [Suspect]
     Dosage: UNK , UNK
     Route: 048
     Dates: start: 2009
  3. KEPPRA [Concomitant]
     Dosage: UNK

REACTIONS (4)
  - Epilepsy [Unknown]
  - Niemann-Pick disease [Unknown]
  - Muscle spasticity [Unknown]
  - Condition aggravated [Unknown]
